FAERS Safety Report 7931659 (Version 4)
Quarter: 2013Q2

REPORT INFORMATION
  Report Type: Report from Study
  Country: FR (occurrence: FR)
  Receive Date: 20110505
  Receipt Date: 20130517
  Transmission Date: 20140414
  Serious: Yes (Hospitalization, Other)
  Sender: FDA-Public Use
  Company Number: FR-ACTELION-A-CH2011-48081

PATIENT
  Age: 58 Year
  Sex: Female

DRUGS (10)
  1. TRACLEER [Suspect]
     Indication: SKIN ULCER
     Dosage: 125 MG, BID
     Route: 048
     Dates: start: 20101219, end: 20110222
  2. TRACLEER [Suspect]
     Dosage: 62.5 MG, BID
     Route: 048
     Dates: start: 201005
  3. ASPEGIC [Suspect]
     Dosage: UNK
     Dates: start: 201102
  4. ASPEGIC [Suspect]
     Dosage: UNK
     Dates: start: 201201
  5. PLAVIX [Suspect]
     Dosage: UNK
     Dates: start: 201101
  6. MOTILIUM [Concomitant]
     Dosage: UNK
     Dates: start: 201102
  7. SIMVASTATIN [Concomitant]
     Dosage: UNK
     Dates: start: 201102
  8. BI-TILDIEM [Concomitant]
     Dosage: UNK
     Dates: start: 201102
  9. INEXIUM [Concomitant]
     Dosage: UNK
  10. NATISPRAY [Concomitant]

REACTIONS (7)
  - Anaemia [Recovered/Resolved]
  - Dyspnoea [Unknown]
  - Myocardial infarction [Unknown]
  - Coronary arterial stent insertion [Unknown]
  - Angina pectoris [Recovered/Resolved]
  - Oesophagitis ulcerative [Recovered/Resolved]
  - Telangiectasia [Recovered/Resolved]
